FAERS Safety Report 13643354 (Version 1)
Quarter: 2017Q2

REPORT INFORMATION
  Report Type: Spontaneous
  Country: US (occurrence: US)
  Receive Date: 20170612
  Receipt Date: 20170612
  Transmission Date: 20170830
  Serious: No
  Sender: FDA-Public Use
  Company Number: US-BAYER-2017-108608

PATIENT
  Age: 90 Year
  Sex: Female
  Weight: 57 kg

DRUGS (2)
  1. ALEVE [Suspect]
     Active Substance: NAPROXEN SODIUM
     Indication: PAIN
     Dosage: 1 OR 2 IN THE MORNING WITH COFFEE
     Route: 048
     Dates: start: 2017
  2. ALEVE [Suspect]
     Active Substance: NAPROXEN SODIUM
     Indication: PAIN
     Dosage: 1 OR 2 IN THE MORNING WITH COFFEE
     Route: 048
     Dates: start: 2017

REACTIONS (4)
  - Drug effect incomplete [Unknown]
  - Product use complaint [None]
  - Wrong technique in product usage process [Unknown]
  - Product packaging issue [None]

NARRATIVE: CASE EVENT DATE: 2017
